FAERS Safety Report 22315328 (Version 1)
Quarter: 2023Q2

REPORT INFORMATION
  Report Type: Spontaneous
  Country: GB (occurrence: None)
  Receive Date: 20230512
  Receipt Date: 20230512
  Transmission Date: 20230721
  Serious: Yes (Hospitalization)
  Sender: FDA-Public Use
  Company Number: 2023A105344

PATIENT
  Age: 701 Month
  Sex: Female

DRUGS (1)
  1. FASENRA [Suspect]
     Active Substance: BENRALIZUMAB
     Indication: Asthma
     Route: 058

REACTIONS (3)
  - Peak expiratory flow rate decreased [Unknown]
  - Product prescribing issue [Unknown]
  - Asthma [Unknown]

NARRATIVE: CASE EVENT DATE: 20221101
